FAERS Safety Report 6931068-6 (Version None)
Quarter: 2010Q3

REPORT INFORMATION
  Report Type: 
  Country: None (occurrence: None)
  Receive Date: 20100817
  Receipt Date: 20100817
  Transmission Date: 20110219
  Serious: Yes (Other)
  Sender: FDA-Public Use
  Company Number: None

PATIENT
  Age: 61 Year
  Sex: Female
  Weight: 70.3075 kg

DRUGS (1)
  1. NAPROXEN [Suspect]
     Indication: BURSITIS
     Dosage: 500MG NAPROXEN TABS TWICE A DAY
     Dates: start: 20100505, end: 20100511

REACTIONS (6)
  - ALOPECIA [None]
  - CONSTIPATION [None]
  - HYPOAESTHESIA [None]
  - MUSCULAR WEAKNESS [None]
  - MUSCULOSKELETAL STIFFNESS [None]
  - MYALGIA [None]
